FAERS Safety Report 10374632 (Version 4)
Quarter: 2014Q3

REPORT INFORMATION
  Report Type: Spontaneous
  Country: US (occurrence: None)
  Receive Date: 20140724
  Receipt Date: 20140924
  Transmission Date: 20150326
  Serious: Yes (Hospitalization, Other)
  Sender: FDA-Public Use
  Company Number: ADR-2014-01283

PATIENT
  Age: 58 Year
  Sex: Male

DRUGS (4)
  1. OTHER MEDICATIONS [Suspect]
     Active Substance: UNSPECIFIED INGREDIENT
  2. LIORESAL [Suspect]
     Active Substance: BACLOFEN
     Indication: MUSCLE SPASTICITY
  3. BACLOFEN (ORAL) [Suspect]
     Active Substance: BACLOFEN
     Indication: MUSCLE SPASTICITY
  4. HYDROCODONE [Suspect]
     Active Substance: HYDROCODONE

REACTIONS (8)
  - Cognitive disorder [None]
  - Drug withdrawal syndrome [None]
  - Somnolence [None]
  - Underdose [None]
  - Hypotonia [None]
  - Intentional overdose [None]
  - Medical device complication [None]
  - Coma [None]

NARRATIVE: CASE EVENT DATE: 20140715
